FAERS Safety Report 10430465 (Version 2)
Quarter: 2014Q3

REPORT INFORMATION
  Report Type: Other
  Country: IT (occurrence: IT)
  Receive Date: 20140904
  Receipt Date: 20140904
  Transmission Date: 20150326
  Serious: Yes (Hospitalization)
  Sender: FDA-Public Use
  Company Number: IT-MYLAN-2014S1007835

PATIENT

DRUGS (5)
  1. CLEXANE T [Interacting]
     Active Substance: ENOXAPARIN SODIUM
     Indication: DEEP VEIN THROMBOSIS
     Dosage: 16 IU,QD
     Route: 058
     Dates: start: 20140319, end: 20140325
  2. COUMADIN [Interacting]
     Active Substance: WARFARIN SODIUM
     Dosage: 7.5 MG,QD
     Route: 048
     Dates: start: 20140319, end: 20140325
  3. COUMADIN [Interacting]
     Active Substance: WARFARIN SODIUM
     Indication: DEEP VEIN THROMBOSIS
     Dosage: 5 MG,PRN
     Route: 048
     Dates: start: 20140314, end: 20140318
  4. ENALAPRIL MALEATE. [Concomitant]
     Active Substance: ENALAPRIL MALEATE
     Indication: HYPERTENSION
     Dosage: 20 MG,UNK
     Route: 048
     Dates: end: 20140325
  5. LEVOFLOXACINA [Suspect]
     Active Substance: LEVOFLOXACIN
     Indication: BRONCHITIS
     Dosage: 500 MG,QD
     Route: 048
     Dates: start: 20140319, end: 20140325

REACTIONS (2)
  - Drug interaction [Recovering/Resolving]
  - Haematuria [Recovering/Resolving]

NARRATIVE: CASE EVENT DATE: 20140325
